FAERS Safety Report 12389267 (Version 1)
Quarter: 2016Q2

REPORT INFORMATION
  Report Type: Spontaneous
  Country: US (occurrence: None)
  Receive Date: 20160519
  Receipt Date: 20160519
  Transmission Date: 20160815
  Serious: Yes (Other)
  Sender: FDA-Public Use
  Company Number: None

PATIENT
  Age: 43 Year
  Sex: Female
  Weight: 49.9 kg

DRUGS (2)
  1. MIRENA [Suspect]
     Active Substance: LEVONORGESTREL
     Indication: MENORRHAGIA
     Dosage: INTRACERVICAL
     Route: 019
     Dates: start: 20160506, end: 20160509
  2. MIRENA [Suspect]
     Active Substance: LEVONORGESTREL
     Indication: CONTRACEPTION
     Dosage: INTRACERVICAL
     Route: 019
     Dates: start: 20160506, end: 20160509

REACTIONS (3)
  - Body temperature increased [None]
  - Complication associated with device [None]
  - Pelvic pain [None]

NARRATIVE: CASE EVENT DATE: 20160506
